FAERS Safety Report 6434669-7 (Version None)
Quarter: 2009Q4

REPORT INFORMATION
  Report Type: 
  Country: None (occurrence: None)
  Receive Date: 20091110
  Receipt Date: 20091106
  Transmission Date: 20100525
  Serious: Yes (Hospitalization)
  Sender: FDA-Public Use
  Company Number: SE-WYE-G04829209

PATIENT
  Sex: Male

DRUGS (2)
  1. PIPERACILLIN/TAZOBACTAM [Suspect]
     Indication: DIVERTICULUM
     Dosage: DOSE 4 GRAM
     Route: 042
     Dates: start: 20090708, end: 20090708
  2. CRESTOR [Concomitant]

REACTIONS (3)
  - ADMINISTRATION SITE PAIN [None]
  - THROMBOPHLEBITIS [None]
  - VENOUS THROMBOSIS LIMB [None]
